FAERS Safety Report 5126385-9 (Version None)
Quarter: 2006Q3

REPORT INFORMATION
  Report Type: 
  Country: None (occurrence: None)
  Receive Date: 20060830
  Receipt Date: 20060403
  Transmission Date: 20061208
  Serious: Yes (Other)
  Sender: FDA-Public Use
  Company Number: 200610664BWH

PATIENT

DRUGS (3)
  1. TRASYLOL [Suspect]
  2. HEPARIN [Suspect]
  3. PROTAMINE SULFATE [Suspect]

REACTIONS (2)
  - COAGULATION TIME PROLONGED [None]
  - HAEMORRHAGE [None]
